FAERS Safety Report 14987998 (Version 1)
Quarter: 2018Q2

REPORT INFORMATION
  Report Type: Spontaneous
  Country: US (occurrence: US)
  Receive Date: 20180519
  Receipt Date: 20180519
  Transmission Date: 20180711
  Serious: Yes (Life-Threatening, Disabling)
  Sender: FDA-Public Use
  Company Number: None

PATIENT
  Age: 70 Year
  Sex: Female
  Weight: 64.35 kg

DRUGS (15)
  1. CARVEDILOL. [Concomitant]
     Active Substance: CARVEDILOL
  2. ALPRAZOLAM. [Concomitant]
     Active Substance: ALPRAZOLAM
  3. ASACOL [Concomitant]
     Active Substance: MESALAMINE
  4. LOSARTAN POTASSIUM. [Concomitant]
     Active Substance: LOSARTAN POTASSIUM
  5. ROSUVASTATIN CALCIUM. [Concomitant]
     Active Substance: ROSUVASTATIN CALCIUM
  6. LOW DOSE ASPIRIN [Concomitant]
     Active Substance: ASPIRIN
  7. MAGNESIUM [Concomitant]
     Active Substance: MAGNESIUM
  8. VIT. D [Concomitant]
  9. MULTAQ [Suspect]
     Active Substance: DRONEDARONE
     Indication: ATRIAL FIBRILLATION
     Dosage: ?          QUANTITY:60 DF DOSAGE FORM;?
     Route: 048
  10. ELIQUIS [Concomitant]
     Active Substance: APIXABAN
  11. LUMIGAN [Concomitant]
     Active Substance: BIMATOPROST
  12. CALCIUM [Concomitant]
     Active Substance: CALCIUM
  13. FLORASTOR PROBIOTIC [Concomitant]
  14. BRIMODINE [Concomitant]
  15. KRILL OIL [Concomitant]
     Active Substance: DIETARY SUPPLEMENT

REACTIONS (1)
  - Hepatic enzyme increased [None]

NARRATIVE: CASE EVENT DATE: 20180312
